FAERS Safety Report 21326518 (Version 2)
Quarter: 2022Q4

REPORT INFORMATION
  Report Type: Spontaneous
  Country: US (occurrence: US)
  Receive Date: 20220913
  Receipt Date: 20221030
  Transmission Date: 20230113
  Serious: Yes (Hospitalization)
  Sender: FDA-Public Use
  Company Number: US-BRISTOL-MYERS SQUIBB COMPANY-2022-103721

PATIENT
  Age: 82 Year
  Sex: Female

DRUGS (1)
  1. REVLIMID [Suspect]
     Active Substance: LENALIDOMIDE
     Indication: Product used for unknown indication
     Dosage: DOSE AND FREQUENCY: TAKE 1 CAPSULE BY MOUTH DAILY FOR 21 DAYS OF 28 DAY CYCLE
     Route: 048
     Dates: start: 20220815, end: 20220901

REACTIONS (1)
  - Hospitalisation [Unknown]
